FAERS Safety Report 13776640 (Version 1)
Quarter: 2017Q3

REPORT INFORMATION
  Report Type: Spontaneous
  Country: US (occurrence: US)
  Receive Date: 20170721
  Receipt Date: 20170721
  Transmission Date: 20171127
  Serious: Yes (Other)
  Sender: FDA-Public Use
  Company Number: US-MYLANLABS-2017M1043222

PATIENT

DRUGS (1)
  1. BUPIVACAINE. [Suspect]
     Active Substance: BUPIVACAINE
     Indication: LOCAL ANAESTHESIA
     Dosage: 7ML, CONCENTRATION 0.5%
     Route: 065

REACTIONS (2)
  - Vocal cord paralysis [Recovered/Resolved]
  - Aphonia [Recovered/Resolved]
